FAERS Safety Report 4886397-7 (Version None)
Quarter: 2006Q1

REPORT INFORMATION
  Report Type: 
  Country: None (occurrence: None)
  Receive Date: 20060120
  Receipt Date: 20051208
  Transmission Date: 20060701
  Serious: Yes (Hospitalization, Other)
  Sender: FDA-Public Use
  Company Number: US-MERCK-0512USA01575

PATIENT
  Age: 44 Year
  Sex: Female
  Weight: 118 kg

DRUGS (6)
  1. VIOXX [Suspect]
     Indication: BACK INJURY
     Route: 048
     Dates: start: 20021201, end: 20030201
  2. CELEBREX [Concomitant]
     Route: 065
  3. FLEXERIL [Concomitant]
     Route: 048
  4. LODINE [Concomitant]
     Route: 065
  5. DARVOCET-N 50 [Concomitant]
     Route: 065
  6. IBUPROFEN [Concomitant]
     Route: 065

REACTIONS (3)
  - ADVERSE EVENT [None]
  - CHEST PAIN [None]
  - MYOCARDIAL INFARCTION [None]
